FAERS Safety Report 7930503 (Version 3)
Quarter: 2012Q4

REPORT INFORMATION
  Report Type: 
  Country: US (occurrence: US)
  Receive Date: 20110504
  Receipt Date: 20121211
  Transmission Date: 20130627
  Serious: Yes (Hospitalization, Other)
  Sender: FDA-Public Use
  Company Number: US-PFIZER INC-2011093838

PATIENT
  Age: 73 Year
  Sex: Male

DRUGS (9)
  1. SIMVASTATIN [Suspect]
     Indication: DRUG USE FOR UNKNOWN INDICATION
     Dosage: 80 mg, 1x/day
     Route: 065
  2. AZITHROMYCIN [Interacting]
     Indication: ACUTE BRONCHITIS
     Dosage: 500 mg, UNK
     Route: 048
  3. AZITHROMYCIN [Interacting]
     Dosage: 250 mg, 1x/day
     Route: 048
  4. BUMETANIDE [Concomitant]
     Indication: DRUG USE FOR UNKNOWN INDICATION
     Dosage: UNK
     Route: 065
  5. LABETALOL [Concomitant]
     Indication: DRUG USE FOR UNKNOWN INDICATION
     Dosage: UNK
     Route: 065
  6. ALLOPURINOL [Concomitant]
     Indication: DRUG USE FOR UNKNOWN INDICATION
     Dosage: 100 mg, daily
     Route: 065
  7. PREDNISONE [Concomitant]
     Indication: DRUG USE FOR UNKNOWN INDICATION
     Dosage: 5 mg, daily
     Route: 065
  8. AMLODIPINE [Concomitant]
     Dosage: UNK
  9. INSULIN GLARGINE [Concomitant]
     Dosage: UNK

REACTIONS (2)
  - Drug interaction [Recovered/Resolved]
  - Rhabdomyolysis [Recovered/Resolved]
